FAERS Safety Report 4404896-9 (Version None)
Quarter: 2004Q3

REPORT INFORMATION
  Report Type: 
  Country: None (occurrence: None)
  Receive Date: 20040716
  Receipt Date: 20040706
  Transmission Date: 20050211
  Serious: Yes (Other)
  Sender: FDA-Public Use
  Company Number: US-JNJFOC-20040701490

PATIENT
  Age: 78 Year
  Sex: Female
  Weight: 79.3795 kg

DRUGS (11)
  1. DOXIL [Suspect]
     Indication: OVARIAN CANCER
     Dosage: 50 MG/M2, 1 IN 21 DAY, INTRAVENOUS
     Route: 042
     Dates: start: 20031006, end: 20040202
  2. SYNTHROID [Concomitant]
  3. DIGOXIN [Concomitant]
  4. LASIX [Concomitant]
  5. DIOVAN [Concomitant]
  6. DIOVAN [Concomitant]
  7. VERAPAMIL [Concomitant]
  8. COUMADIN [Concomitant]
  9. PROTONIX [Concomitant]
  10. OXYCODONE HCL [Concomitant]
  11. PREDNISONE TAB [Concomitant]

REACTIONS (4)
  - CONDITION AGGRAVATED [None]
  - DYSPNOEA EXACERBATED [None]
  - INTERSTITIAL LUNG DISEASE [None]
  - RESTRICTIVE PULMONARY DISEASE [None]
